FAERS Safety Report 25266452 (Version 1)
Quarter: 2025Q2

REPORT INFORMATION
  Report Type: Spontaneous
  Country: US (occurrence: US)
  Receive Date: 20250505
  Receipt Date: 20250505
  Transmission Date: 20250716
  Serious: Yes (Death, Other)
  Sender: AMGEN
  Company Number: US-AMGEN-USASP2025081976

PATIENT
  Age: 78 Year
  Sex: Female

DRUGS (1)
  1. PREDNISONE [Suspect]
     Active Substance: PREDNISONE
     Indication: Glomerulonephritis proliferative
     Route: 065

REACTIONS (3)
  - Death [Fatal]
  - Renal impairment [Not Recovered/Not Resolved]
  - Off label use [Unknown]
